FAERS Safety Report 17001790 (Version 1)
Quarter: 2019Q4

REPORT INFORMATION
  Report Type: Spontaneous
  Country: FR (occurrence: FR)
  Receive Date: 20191106
  Receipt Date: 20191106
  Transmission Date: 20200122
  Serious: Yes (Other)
  Sender: FDA-Public Use
  Company Number: FR-US-PROVELL PHARMACEUTICALS LLC-9016343

PATIENT
  Age: 40 Year
  Sex: Female

DRUGS (1)
  1. LEVOTHYROX NF [Suspect]
     Active Substance: LEVOTHYROXINE SODIUM
     Indication: PRODUCT USED FOR UNKNOWN INDICATION

REACTIONS (24)
  - Tri-iodothyronine decreased [Recovered/Resolved]
  - Blood thyroid stimulating hormone decreased [Unknown]
  - Gait inability [Unknown]
  - Weight increased [Unknown]
  - Apathy [Unknown]
  - Paranoia [Unknown]
  - Crying [Unknown]
  - Thyroglobulin decreased [Unknown]
  - Red blood cell count decreased [Unknown]
  - Mood altered [Unknown]
  - Alanine aminotransferase increased [Unknown]
  - Alopecia [Unknown]
  - Hot flush [Unknown]
  - Thyroxine free increased [Unknown]
  - Arthralgia [Unknown]
  - Myalgia [Unknown]
  - Pain [Unknown]
  - Burning sensation [Unknown]
  - Pelvic pain [Unknown]
  - Insomnia [Unknown]
  - Mood swings [Unknown]
  - Fatigue [Unknown]
  - Emotional distress [Unknown]
  - Social avoidant behaviour [Unknown]

NARRATIVE: CASE EVENT DATE: 20170323
